FAERS Safety Report 9831773 (Version 2)
Quarter: 2014Q1

REPORT INFORMATION
  Report Type: Spontaneous
  Country: US (occurrence: US)
  Receive Date: 20140121
  Receipt Date: 20140121
  Transmission Date: 20141002
  Serious: No
  Sender: FDA-Public Use
  Company Number: US-PFIZER INC-2013310239

PATIENT
  Age: 3 Year
  Sex: Male

DRUGS (1)
  1. XALKORI [Suspect]
     Indication: NEUROBLASTOMA RECURRENT
     Dosage: 175 MG, 2X/DAY
     Dates: start: 20131008, end: 20131112

REACTIONS (3)
  - Disease progression [Not Recovered/Not Resolved]
  - Neuroblastoma [Not Recovered/Not Resolved]
  - Off label use [Unknown]
